FAERS Safety Report 8609804-2 (Version None)
Quarter: 2012Q3

REPORT INFORMATION
  Report Type: 
  Country: None (occurrence: None)
  Receive Date: 20120821
  Receipt Date: 20120815
  Transmission Date: 20120928
  Serious: Yes (Other)
  Sender: FDA-Public Use
  Company Number: US-ABBOTT-12P-163-0964033-00

PATIENT

DRUGS (2)
  1. HUMIRA [Suspect]
     Indication: MATERNAL EXPOSURE TIMING UNSPECIFIED
     Route: 064
  2. HUMIRA [Suspect]
     Route: 063

REACTIONS (4)
  - EXPOSURE DURING BREAST FEEDING [None]
  - BLOOD BILIRUBIN INCREASED [None]
  - NEONATAL ASPIRATION [None]
  - FOETAL EXPOSURE DURING PREGNANCY [None]
